FAERS Safety Report 15416988 (Version 6)
Quarter: 2019Q2

REPORT INFORMATION
  Report Type: Spontaneous
  Country: US (occurrence: US)
  Receive Date: 20180924
  Receipt Date: 20190423
  Transmission Date: 20190711
  Serious: No
  Sender: FDA-Public Use
  Company Number: US-BRISTOL-MYERS SQUIBB COMPANY-BMS-2018-086887

PATIENT
  Sex: Female

DRUGS (2)
  1. ORENCIA [Suspect]
     Active Substance: ABATACEPT
     Indication: RHEUMATOID ARTHRITIS
     Dosage: 125 MG, QWK
     Route: 058
     Dates: start: 201806
  2. ORENCIA [Suspect]
     Active Substance: ABATACEPT
     Indication: HEPATIC CIRRHOSIS
     Route: 065

REACTIONS (4)
  - Infection [Unknown]
  - Upper respiratory tract infection [Unknown]
  - Product dose omission [Unknown]
  - Adverse event [Unknown]
